FAERS Safety Report 9632393 (Version 1)
Quarter: 2013Q4

REPORT INFORMATION
  Report Type: Spontaneous
  Country: US (occurrence: None)
  Receive Date: 20131018
  Receipt Date: 20131018
  Transmission Date: 20140711
  Serious: No
  Sender: FDA-Public Use
  Company Number: None

PATIENT
  Age: 61 Year
  Sex: Female
  Weight: 86.18 kg

DRUGS (1)
  1. LEVOFLOXCIN [Suspect]
     Indication: SKIN INFECTION
     Dates: start: 20130722, end: 20130729

REACTIONS (4)
  - Tendonitis [None]
  - Joint swelling [None]
  - Dysstasia [None]
  - Abasia [None]
